FAERS Safety Report 17600112 (Version 1)
Quarter: 2020Q1

REPORT INFORMATION
  Report Type: Spontaneous
  Country: GB (occurrence: GB)
  Receive Date: 20200330
  Receipt Date: 20200330
  Transmission Date: 20200409
  Serious: Yes (Disabling)
  Sender: FDA-Public Use
  Company Number: GB-MYLANLABS-2020M1032755

PATIENT
  Age: 83 Year
  Sex: Female
  Weight: 80 kg

DRUGS (10)
  1. BENDROFLUMETHIAZIDE [Concomitant]
     Active Substance: BENDROFLUMETHIAZIDE
     Dosage: 1 DOSAGE FORM, QD (EACH MORNING)
     Dates: start: 20191106
  2. ROSUVASTATIN. [Suspect]
     Active Substance: ROSUVASTATIN
     Indication: PRODUCT USED FOR UNKNOWN INDICATION
     Dosage: 20 MILLIGRAM
     Dates: start: 20191205
  3. AQUEOUS                            /00662801/ [Concomitant]
     Dosage: APPLY AS NEEDED
     Dates: start: 20191106
  4. LERCANIDIPINE HYDROCHLORIDE [Concomitant]
     Active Substance: LERCANIDIPINE HYDROCHLORIDE
     Dosage: 1 DOSAGE FORM, QD
     Dates: start: 20191106
  5. DONEPEZIL HYDROCHLORIDE. [Concomitant]
     Active Substance: DONEPEZIL HYDROCHLORIDE
     Dosage: 1 DOSAGE FORM, QD
     Dates: start: 20191106
  6. EPILIM [Concomitant]
     Active Substance: VALPROATE SODIUM
     Dosage: 6 DOSAGE FORM, QD
     Dates: start: 20191106
  7. LEVOTHYROXINE. [Concomitant]
     Active Substance: LEVOTHYROXINE
     Dosage: 1 DOSAGE FORM, QD (MORNING)
     Dates: start: 20191106
  8. ADCAL                              /07357001/ [Concomitant]
     Active Substance: CALCIUM CARBONATE
     Dosage: 2 DOSAGE FORM, QD
     Dates: start: 20191106
  9. NITROFURANTOIN. [Concomitant]
     Active Substance: NITROFURANTOIN
     Dosage: 100 MILLIGRAM, BID (FOR 3 DAYS)
     Dates: start: 20200225, end: 20200228
  10. HYLO-FORTE [Concomitant]
     Active Substance: HYALURONATE SODIUM
     Dosage: USE AS DIRECTED
     Dates: start: 20191106

REACTIONS (1)
  - Muscle spasms [Unknown]

NARRATIVE: CASE EVENT DATE: 20191206
